FAERS Safety Report 24782488 (Version 1)
Quarter: 2024Q4

REPORT INFORMATION
  Report Type: Spontaneous
  Country: DE (occurrence: DE)
  Receive Date: 20241227
  Receipt Date: 20241227
  Transmission Date: 20250114
  Serious: Yes (Other)
  Sender: SANDOZ
  Company Number: DE-ESTEVE-2024-02728

PATIENT
  Sex: Male

DRUGS (3)
  1. AMITRIPTYLINE [Suspect]
     Active Substance: AMITRIPTYLINE
     Indication: Product used for unknown indication
     Dosage: 1 {DF}, QD, IN THE EVENING VIA PEG TUBE
     Route: 065
  2. ROBINUL [Suspect]
     Active Substance: GLYCOPYRROLATE
     Indication: Product used for unknown indication
     Dosage: UNK
     Route: 042
  3. Ipravent [Concomitant]
     Indication: Product used for unknown indication
     Dosage: 0.02 MG
     Route: 065

REACTIONS (3)
  - Dementia [Unknown]
  - Drug interaction [Unknown]
  - Off label use [Unknown]
